FAERS Safety Report 26180827 (Version 2)
Quarter: 2025Q4

REPORT INFORMATION
  Report Type: Spontaneous
  Country: GB (occurrence: GB)
  Receive Date: 20251221
  Receipt Date: 20251222
  Transmission Date: 20260117
  Serious: Yes (Other)
  Sender: SANDOZ
  Company Number: None

PATIENT
  Age: 52 Year
  Sex: Female
  Weight: 79 kg

DRUGS (18)
  1. CLARITHROMYCIN [Suspect]
     Active Substance: CLARITHROMYCIN
     Indication: Product used for unknown indication
     Dosage: 250 MG, Q12H TAKE ONE EVERY 12 HRS
     Dates: start: 20251209
  2. BETAMETHASONE DIPROPIONATE [Concomitant]
     Active Substance: BETAMETHASONE DIPROPIONATE
     Indication: Ill-defined disorder
     Dosage: APPLY 1-2 TIMES/DAY
  3. ESTRADIOL [Concomitant]
     Active Substance: ESTRADIOL
     Indication: Ill-defined disorder
     Dosage: USE AS DIRECTED
  4. ESTRIOL [Concomitant]
     Active Substance: ESTRIOL
     Indication: Ill-defined disorder
     Dosage: USE AS DIRECTED
  5. LANSOPRAZOLE [Concomitant]
     Active Substance: LANSOPRAZOLE
     Indication: Ill-defined disorder
     Dosage: TAKE ONE ONCE DAILY
     Dates: start: 20251215
  6. NAPROXEN [Concomitant]
     Active Substance: NAPROXEN
     Indication: Ill-defined disorder
     Dosage: TAKE ONE TWICE DAILY
     Dates: start: 20250930, end: 20251028
  7. TACROLIMUS [Concomitant]
     Active Substance: TACROLIMUS
     Indication: Ill-defined disorder
     Dosage: APPLY DAILY TO HANDS AND FEET
  8. EMULSIDERM [Concomitant]
     Indication: Ill-defined disorder
     Dosage: APPLY AS DIRECTED
  9. BLISSEL [Concomitant]
     Indication: Ill-defined disorder
     Dosage: AS PREVIOUSLY ADVISED
  10. HYDROCORTISONE [Concomitant]
     Active Substance: HYDROCORTISONE
     Indication: Ill-defined disorder
     Dosage: APPLY TWICE DAILY
     Dates: start: 20251210, end: 20251211
  11. KETOTIFEN [Concomitant]
     Active Substance: KETOTIFEN
     Indication: Ill-defined disorder
     Dosage: ONE DROP TWICE DAILY
     Dates: start: 20251214
  12. CLOTRIMAZOLE [Concomitant]
     Active Substance: CLOTRIMAZOLE
     Indication: Ill-defined disorder
     Dosage: INSERT ONE AT NIGHT WHEN REQUIRED
  13. LEVOTHYROXINE [Concomitant]
     Active Substance: LEVOTHYROXINE
     Indication: Ill-defined disorder
     Dosage: TAKE ONE DAILY - TOTAL DAILY DOSE 150MCG
     Dates: start: 20220617
  14. PROPRANOLOL [Concomitant]
     Active Substance: PROPRANOLOL HYDROCHLORIDE
     Indication: Ill-defined disorder
     Dosage: TAKE ONE DAILY
     Dates: start: 20241002
  15. BETNOVATE [Concomitant]
     Active Substance: BETAMETHASONE
     Indication: Ill-defined disorder
     Dosage: APPLY SPARINGLY, TWICE A DAY AS DIRECTED, AVOID...
  16. MIRTAZAPINE [Concomitant]
     Active Substance: MIRTAZAPINE
     Indication: Ill-defined disorder
     Dosage: TAKE ONE AT NIGHT
  17. UTROGESTAN [Concomitant]
     Active Substance: PROGESTERONE
     Indication: Ill-defined disorder
     Dosage: TWO CAPSULES TO BE TAKEN EACH NIGHT ON DAYS 15 ...
  18. FLUCONAZOLE [Concomitant]
     Active Substance: FLUCONAZOLE
     Indication: Ill-defined disorder
     Dosage: TAKE ONE DAILY AS DIRECTED

REACTIONS (4)
  - Ocular hyperaemia [Unknown]
  - Dry eye [Unknown]
  - Nausea [Unknown]
  - Tinnitus [Unknown]

NARRATIVE: CASE EVENT DATE: 20251215
